FAERS Safety Report 18879803 (Version 1)
Quarter: 2021Q1

REPORT INFORMATION
  Report Type: Spontaneous
  Country: US (occurrence: US)
  Receive Date: 20210211
  Receipt Date: 20210211
  Transmission Date: 20210420
  Serious: No
  Sender: FDA-Public Use
  Company Number: US-BAYER-2021-055490

PATIENT
  Age: 30 Month
  Sex: Female

DRUGS (1)
  1. MIRALAX [Suspect]
     Active Substance: POLYETHYLENE GLYCOL 3350
     Indication: GASTROINTESTINAL DISORDER
     Dosage: 15 ML, QD
     Route: 048
     Dates: start: 202007, end: 20210131

REACTIONS (2)
  - Product use issue [Unknown]
  - Product taste abnormal [None]

NARRATIVE: CASE EVENT DATE: 202007
